FAERS Safety Report 7597795-5 (Version None)
Quarter: 2011Q3

REPORT INFORMATION
  Report Type: 
  Country: None (occurrence: None)
  Receive Date: 20110708
  Receipt Date: 20110706
  Transmission Date: 20111222
  Serious: Yes (Hospitalization)
  Sender: FDA-Public Use
  Company Number: US-ABBOTT-11P-163-0836437-00

PATIENT
  Sex: Female
  Weight: 83.99 kg

DRUGS (28)
  1. PRILOSEC [Concomitant]
     Indication: GASTRIC DISORDER
     Route: 048
     Dates: start: 20110204, end: 20110316
  2. DILAUDID HCL [Concomitant]
     Indication: PAIN
     Route: 042
     Dates: start: 20110512, end: 20110514
  3. HUMIRA [Suspect]
     Indication: CROHN'S DISEASE
     Route: 050
     Dates: start: 20110204
  4. VICODIN [Concomitant]
     Indication: PAIN
     Route: 048
     Dates: start: 20110514, end: 20110623
  5. OTHER CHEMICALS/EXPOSURE [Concomitant]
     Indication: ANTIALLERGIC THERAPY
     Route: 048
     Dates: start: 20110526, end: 20110609
  6. ERYTHROMYCIN [Concomitant]
     Indication: NASOPHARYNGITIS
     Route: 048
     Dates: start: 20110302, end: 20110302
  7. PREDNISONE [Concomitant]
     Route: 048
     Dates: start: 20110512, end: 20110517
  8. PREDNISONE [Concomitant]
     Route: 048
     Dates: start: 20110605, end: 20110610
  9. TYLENOL-500 [Concomitant]
     Indication: NASOPHARYNGITIS
     Route: 048
     Dates: start: 20110301, end: 20110307
  10. COUGH MEDICATIONS/SYRUP/DROP [Concomitant]
     Indication: NASOPHARYNGITIS
     Dates: start: 20110301, end: 20110307
  11. CONDOMS PLUS SPERMACIDE [Concomitant]
     Indication: PRODUCT USED FOR UNKNOWN INDICATION
     Route: 061
     Dates: start: 20110204, end: 20110312
  12. BENADRYL [Concomitant]
  13. PREDNISONE [Concomitant]
     Route: 048
     Dates: start: 20110530, end: 20110604
  14. MULTI-VITAMINS [Concomitant]
     Indication: PRODUCT USED FOR UNKNOWN INDICATION
     Route: 048
     Dates: start: 20110204, end: 20110524
  15. TYLENOL PM [Concomitant]
     Indication: POOR QUALITY SLEEP
     Route: 048
     Dates: start: 20110301, end: 20110307
  16. DHA [Concomitant]
     Indication: PRODUCT USED FOR UNKNOWN INDICATION
     Route: 048
     Dates: start: 20110524
  17. BENADRYL [Concomitant]
     Indication: POOR QUALITY SLEEP
     Route: 048
     Dates: start: 20110610, end: 20110613
  18. TRAMADOL HCL [Concomitant]
     Indication: PAIN
     Route: 048
     Dates: start: 20110514, end: 20110623
  19. FLUOXETINE HYDROCHLORIDE [Concomitant]
     Indication: DEPRESSION
     Route: 048
     Dates: start: 20110204, end: 20110313
  20. ERYTHROMYCIN [Concomitant]
     Route: 048
     Dates: start: 20110303, end: 20110306
  21. PREDNISONE [Concomitant]
     Route: 048
     Dates: start: 20110623
  22. PREDNISONE [Concomitant]
     Indication: CROHN'S DISEASE
     Route: 048
     Dates: start: 20110204, end: 20110331
  23. PREDNISONE [Concomitant]
     Route: 048
     Dates: start: 20110518, end: 20110523
  24. PREDNISONE [Concomitant]
     Route: 048
     Dates: start: 20110617, end: 20110622
  25. FERROUS SULFATE TAB [Concomitant]
     Indication: ANAEMIA
     Route: 048
     Dates: start: 20110204
  26. PREDNISONE [Concomitant]
     Route: 048
     Dates: start: 20110524, end: 20110529
  27. PREDNISONE [Concomitant]
     Route: 048
     Dates: start: 20110611, end: 20110616
  28. BENADRYL [Concomitant]
     Indication: HYPERSENSITIVITY
     Route: 042
     Dates: start: 20110514, end: 20110514

REACTIONS (9)
  - INSOMNIA [None]
  - SMALL INTESTINE ULCER [None]
  - NASOPHARYNGITIS [None]
  - RESPIRATORY TRACT INFECTION [None]
  - PAIN [None]
  - CROHN'S DISEASE [None]
  - TENDONITIS [None]
  - ANAEMIA [None]
  - HYPERSENSITIVITY [None]
